FAERS Safety Report 18193189 (Version 1)
Quarter: 2020Q3

REPORT INFORMATION
  Report Type: Spontaneous
  Country: US (occurrence: US)
  Receive Date: 20200825
  Receipt Date: 20200825
  Transmission Date: 20201103
  Serious: No
  Sender: FDA-Public Use
  Company Number: US-009507513-2008USA009243

PATIENT
  Age: 33 Year
  Sex: Female

DRUGS (1)
  1. TEMODAR [Suspect]
     Active Substance: TEMOZOLOMIDE
     Indication: BRAIN NEOPLASM MALIGNANT
     Dosage: 1 CAPSULE ON DAYS 1?5 OF A 28 CYCLE
     Route: 048

REACTIONS (2)
  - Nausea [Recovered/Resolved with Sequelae]
  - Fatigue [Not Recovered/Not Resolved]
